FAERS Safety Report 4530150-0 (Version None)
Quarter: 2004Q4

REPORT INFORMATION
  Report Type: 
  Country: None (occurrence: None)
  Receive Date: 20041215
  Receipt Date: 20041215
  Transmission Date: 20050328
  Serious: Yes (Hospitalization)
  Sender: FDA-Public Use
  Company Number: None

PATIENT
  Age: 59 Year
  Sex: Female
  Weight: 61.6 kg

DRUGS (1)
  1. IBUPROFEN [Suspect]
     Indication: DISCOMFORT
     Dosage: 400MG  BID ORAL
     Route: 048
     Dates: start: 20041011, end: 20041015

REACTIONS (1)
  - GASTROINTESTINAL HAEMORRHAGE [None]
